FAERS Safety Report 13871184 (Version 2)
Quarter: 2018Q3

REPORT INFORMATION
  Report Type: Spontaneous
  Country: FR (occurrence: FR)
  Receive Date: 20170816
  Receipt Date: 20180703
  Transmission Date: 20181010
  Serious: Yes (Other)
  Sender: FDA-Public Use
  Company Number: FR-MACLEODS PHARMACEUTICALS US LTD-MAC2017005588

PATIENT

DRUGS (1)
  1. ARIPIPRAZOLE TABLET [Suspect]
     Active Substance: ARIPIPRAZOLE
     Indication: SCHIZOPHRENIA
     Dosage: UNK
     Route: 048

REACTIONS (14)
  - Acute febrile neutrophilic dermatosis [Recovered/Resolved]
  - Asthenia [Recovered/Resolved]
  - Extrapyramidal disorder [Unknown]
  - Skin oedema [Recovered/Resolved]
  - Pyrexia [Recovering/Resolving]
  - Rash vesicular [Recovered/Resolved]
  - Erythema [Recovered/Resolved]
  - Blood creatine phosphokinase increased [Recovering/Resolving]
  - Skin plaque [Recovered/Resolved]
  - Skin lesion [Recovered/Resolved]
  - Neutrophilia [Unknown]
  - C-reactive protein increased [Recovering/Resolving]
  - Leukocytosis [Unknown]
  - Neuroleptic malignant syndrome [Recovered/Resolved]
